FAERS Safety Report 8096851-5 (Version None)
Quarter: 2012Q1

REPORT INFORMATION
  Report Type: 
  Country: None (occurrence: None)
  Receive Date: 20120129
  Receipt Date: 20111203
  Transmission Date: 20120608
  Serious: No
  Sender: FDA-Public Use
  Company Number: US-ABBOTT-11P-163-0880659-00

PATIENT
  Age: 45 Year
  Sex: Female

DRUGS (2)
  1. HUMIRA [Suspect]
     Indication: CROHN'S DISEASE
     Dosage: 160MG,THEN IN 2 WEEKS 80MG, THEN 40MG EOW
     Dates: start: 20111127
  2. ALIGN [Concomitant]
     Indication: PRODUCT USED FOR UNKNOWN INDICATION
     Dosage: OVER THE COUNTER PROBIOTIC

REACTIONS (4)
  - RASH PRURITIC [None]
  - RASH ERYTHEMATOUS [None]
  - RASH PAPULAR [None]
  - INJECTION SITE ERYTHEMA [None]
